FAERS Safety Report 18491518 (Version 2)
Quarter: 2020Q4

REPORT INFORMATION
  Report Type: Report from Study
  Country: FR (occurrence: FR)
  Receive Date: 20201111
  Receipt Date: 20201123
  Transmission Date: 20210114
  Serious: Yes (Death, Other)
  Sender: FDA-Public Use
  Company Number: FR-GILEAD-2020-0503959

PATIENT
  Age: 87 Year
  Sex: Female
  Weight: 67 kg

DRUGS (8)
  1. ROVAMYCINE [SPIRAMYCIN] [Concomitant]
     Active Substance: SPIRAMYCIN
     Indication: LUNG DISORDER
     Dosage: 1.5 MIU
     Route: 042
     Dates: start: 20200925, end: 20200927
  2. OXYGEN. [Concomitant]
     Active Substance: OXYGEN
  3. CEFOTAXIME [Concomitant]
     Active Substance: CEFOTAXIME SODIUM
     Indication: LUNG DISORDER
     Dosage: 2 G
     Route: 042
     Dates: start: 20200925, end: 20200930
  4. REMDESIVIR. [Suspect]
     Active Substance: REMDESIVIR
     Dosage: 100 MG
     Route: 042
     Dates: start: 20200928, end: 20201001
  5. SOLU-MEDROL [Concomitant]
     Active Substance: METHYLPREDNISOLONE SODIUM SUCCINATE
     Indication: COVID-19
     Dosage: 40 MG
     Route: 042
     Dates: start: 20200925
  6. REMDESIVIR. [Suspect]
     Active Substance: REMDESIVIR
     Indication: COVID-19
     Dosage: 200 MG
     Route: 042
     Dates: start: 20200927, end: 20200927
  7. DEXAMETHASONE. [Concomitant]
     Active Substance: DEXAMETHASONE
     Dosage: 6 MG, QD
     Route: 042
     Dates: start: 20200927
  8. CALCIPARINE [Concomitant]
     Active Substance: HEPARIN CALCIUM
     Indication: COVID-19
     Dosage: 0.3 ML
     Route: 058
     Dates: start: 20200925

REACTIONS (1)
  - COVID-19 [Fatal]

NARRATIVE: CASE EVENT DATE: 202010
